FAERS Safety Report 21176323 (Version 1)
Quarter: 2022Q3

REPORT INFORMATION
  Report Type: Spontaneous
  Country: US (occurrence: US)
  Receive Date: 20220805
  Receipt Date: 20220805
  Transmission Date: 20221026
  Serious: No
  Sender: FDA-Public Use
  Company Number: US-NEURELIS, INC.-2022NEU000037

PATIENT

DRUGS (2)
  1. VALTOCO [Suspect]
     Active Substance: DIAZEPAM
     Indication: Seizure
     Dosage: 7.5 MG, ONE DOSE
     Route: 045
  2. MIDAZOLAM [Suspect]
     Active Substance: MIDAZOLAM
     Indication: Product used for unknown indication
     Dosage: UNK
     Route: 045

REACTIONS (2)
  - Fatigue [Unknown]
  - Dysgeusia [Unknown]
